FAERS Safety Report 6509924-2 (Version None)
Quarter: 2009Q4

REPORT INFORMATION
  Report Type: 
  Country: None (occurrence: None)
  Receive Date: 20091222
  Receipt Date: 20091214
  Transmission Date: 20100525
  Serious: Yes (Hospitalization)
  Sender: FDA-Public Use
  Company Number: PHHY2009JP53403

PATIENT
  Sex: Male
  Weight: 45 kg

DRUGS (6)
  1. NEORAL [Suspect]
     Indication: PSORIASIS
     Dosage: 150 MG DAILY
     Route: 048
     Dates: start: 20040512
  2. NEORAL [Suspect]
     Dosage: 1.33 MG/KG/DAY TO 1.5 MG/KG/DAY
     Route: 048
     Dates: start: 20080529, end: 20090212
  3. NEORAL [Suspect]
     Dosage: 60 MG DAILY
     Route: 048
     Dates: end: 20090312
  4. OXAROL [Concomitant]
     Dosage: 2 G, UNK
     Route: 061
     Dates: start: 20040512, end: 20091104
  5. VITAMIN D3 [Concomitant]
     Route: 061
  6. STEROIDS NOS [Concomitant]

REACTIONS (9)
  - ANAEMIA [None]
  - CHOLECYSTITIS [None]
  - CHOLELITHIASIS [None]
  - HAEMATOCHEZIA [None]
  - HYPERCALCAEMIA [None]
  - LYMPHADENOPATHY [None]
  - NON-HODGKIN'S LYMPHOMA [None]
  - PSORIASIS [None]
  - RENAL FAILURE ACUTE [None]
